FAERS Safety Report 12717510 (Version 1)
Quarter: 2016Q3

REPORT INFORMATION
  Report Type: Spontaneous
  Country: US (occurrence: US)
  Receive Date: 20160906
  Receipt Date: 20160906
  Transmission Date: 20161109
  Serious: No
  Sender: FDA-Public Use
  Company Number: US-AMNEAL PHARMACEUTICALS-2016AMN00111

PATIENT
  Sex: Female
  Weight: 86.17 kg

DRUGS (4)
  1. GABAPENTIN. [Suspect]
     Active Substance: GABAPENTIN
     Indication: FIBROMYALGIA
     Dosage: 300 MG, ONE IN THE MORNING, ONE IN THE AFTERNOON AND TWO IN THE EVENING
     Route: 048
     Dates: end: 201509
  2. GABAPENTIN. [Suspect]
     Active Substance: GABAPENTIN
     Indication: OSTEOPOROSIS
  3. HYDROCODONE [Concomitant]
     Active Substance: HYDROCODONE
  4. GABAPENTIN. [Suspect]
     Active Substance: GABAPENTIN
     Indication: BACK PAIN

REACTIONS (6)
  - Feeling abnormal [Not Recovered/Not Resolved]
  - Drug ineffective [Not Recovered/Not Resolved]
  - Weight increased [Not Recovered/Not Resolved]
  - Somnolence [Not Recovered/Not Resolved]
  - Off label use [Unknown]
  - Poor quality sleep [Not Recovered/Not Resolved]
